FAERS Safety Report 7129160-9 (Version None)
Quarter: 2010Q4

REPORT INFORMATION
  Report Type: 
  Country: None (occurrence: None)
  Receive Date: 20101116
  Receipt Date: 20101102
  Transmission Date: 20110411
  Serious: Yes (Death, Other)
  Sender: FDA-Public Use
  Company Number: 2010P1002341

PATIENT
  Age: 26 Year
  Sex: Female
  Weight: 79.3795 kg

DRUGS (5)
  1. FENTANYL [Suspect]
     Indication: HEADACHE
     Dosage: 75 MCG/HR;Q72H;TDER
     Route: 062
     Dates: start: 20100418, end: 20100422
  2. COLACE [Concomitant]
  3. PAXIL [Concomitant]
  4. TOPRANIL [Concomitant]
  5. BACLOFEN [Concomitant]

REACTIONS (5)
  - ANALGESIC DRUG LEVEL INCREASED [None]
  - CEREBRAL HAEMORRHAGE [None]
  - DRUG EFFECT DECREASED [None]
  - DRUG LEVEL CHANGED [None]
  - PNEUMONIA [None]
